FAERS Safety Report 25586097 (Version 1)
Quarter: 2025Q3

REPORT INFORMATION
  Report Type: Report from Study
  Country: US (occurrence: US)
  Receive Date: 20250721
  Receipt Date: 20250721
  Transmission Date: 20251021
  Serious: Yes (Other)
  Sender: INCYTE
  Company Number: US-EVENT-003617

PATIENT

DRUGS (2)
  1. JAKAFI [Suspect]
     Active Substance: RUXOLITINIB
     Indication: Haematological malignancy
     Dosage: 5 MILLIGRAM, BID
     Route: 065
  2. JAKAFI [Suspect]
     Active Substance: RUXOLITINIB
     Dosage: 10 MILLIGRAM, BID (1 IN THE MORNING AND 1 IN THE EVENING)
     Route: 065

REACTIONS (4)
  - Rheumatoid arthritis [Unknown]
  - Sciatica [Unknown]
  - Inflammation [Unknown]
  - Osteoporosis [Unknown]
